FAERS Safety Report 5952124-5 (Version None)
Quarter: 2008Q4

REPORT INFORMATION
  Report Type: 
  Country: None (occurrence: None)
  Receive Date: 20081113
  Receipt Date: 20080515
  Transmission Date: 20090506
  Serious: No
  Sender: FDA-Public Use
  Company Number: A0728111A

PATIENT
  Age: 47 Year
  Sex: Female

DRUGS (6)
  1. COREG [Suspect]
     Dosage: 6.25MG TWICE PER DAY
     Route: 048
     Dates: start: 20070514
  2. WARFARIN SODIUM [Concomitant]
  3. KLOR-CON [Concomitant]
  4. CLONIDINE [Concomitant]
  5. FUROSEMIDE [Concomitant]
  6. FOSINOPRIL SODIUM [Concomitant]

REACTIONS (2)
  - BLOOD PRESSURE FLUCTUATION [None]
  - WEIGHT INCREASED [None]
